FAERS Safety Report 9424942 (Version 2)
Quarter: 2013Q3

REPORT INFORMATION
  Report Type: Spontaneous
  Country: TR (occurrence: TR)
  Receive Date: 20130729
  Receipt Date: 20130919
  Transmission Date: 20140515
  Serious: Yes (Other)
  Sender: FDA-Public Use
  Company Number: TR-PFIZER INC-2013215930

PATIENT
  Age: 32 Year
  Sex: Female

DRUGS (1)
  1. METHYLPREDNISOLONE SODIUM SUCCINATE [Suspect]
     Indication: MULTIPLE SCLEROSIS
     Dosage: 1 G, 1X/DAY
     Route: 042

REACTIONS (1)
  - Cerebral venous thrombosis [Recovered/Resolved]
